FAERS Safety Report 6731147-2 (Version None)
Quarter: 2010Q2

REPORT INFORMATION
  Report Type: 
  Country: None (occurrence: None)
  Receive Date: 20100518
  Receipt Date: 20100505
  Transmission Date: 20101027
  Serious: Yes (Hospitalization)
  Sender: FDA-Public Use
  Company Number: US-ELI_LILLY_AND_COMPANY-US201003003330

PATIENT
  Age: 41 Year
  Sex: Male

DRUGS (6)
  1. CYMBALTA [Suspect]
     Indication: NEURALGIA
     Dosage: 30 MG, DAILY (1/D)
     Dates: start: 20090101
  2. CYMBALTA [Suspect]
     Dosage: 60 MG, DAILY (1/D)
  3. CYMBALTA [Suspect]
     Dosage: 90 MG, DAILY (1/D)
  4. METHADONE HCL [Concomitant]
  5. OXYCODONE [Concomitant]
  6. ALBUTEROL [Concomitant]

REACTIONS (3)
  - ERYTHEMA [None]
  - LYMPHOEDEMA [None]
  - RASH MACULAR [None]
